FAERS Safety Report 9026941 (Version 1)
Quarter: 2013Q1

REPORT INFORMATION
  Report Type: Spontaneous
  Country: IE (occurrence: IE)
  Receive Date: 20130123
  Receipt Date: 20130123
  Transmission Date: 20140127
  Serious: Yes (Other)
  Sender: FDA-Public Use
  Company Number: IE-JNJFOC-20130110773

PATIENT
  Sex: Male

DRUGS (1)
  1. NICORETTE QUICKMIST [Suspect]
     Indication: SMOKING CESSATION THERAPY
     Dosage: 5/6 SPRAYS A DAY
     Route: 065
     Dates: end: 201301

REACTIONS (4)
  - Tongue disorder [Unknown]
  - Ageusia [Unknown]
  - Hyposmia [Unknown]
  - Hypoaesthesia oral [Unknown]
